FAERS Safety Report 22193052 (Version 1)
Quarter: 2023Q2

REPORT INFORMATION
  Report Type: Spontaneous
  Country: US (occurrence: US)
  Receive Date: 20230410
  Receipt Date: 20230410
  Transmission Date: 20230721
  Serious: No
  Sender: FDA-Public Use
  Company Number: None

PATIENT
  Age: 68 Year
  Sex: Female

DRUGS (1)
  1. ZIOPTAN [Suspect]
     Active Substance: TAFLUPROST

REACTIONS (5)
  - Madarosis [Recovered/Resolved]
  - Eyelids pruritus [Recovered/Resolved]
  - Milia [Recovered/Resolved]
  - Vision blurred [Recovered/Resolved]
  - Eyelid pain [Recovered/Resolved]
